FAERS Safety Report 23664103 (Version 1)
Quarter: 2024Q1

REPORT INFORMATION
  Report Type: Spontaneous
  Country: BR (occurrence: BR)
  Receive Date: 20240322
  Receipt Date: 20240322
  Transmission Date: 20240410
  Serious: Yes (Life-Threatening, Hospitalization, Other)
  Sender: FDA-Public Use
  Company Number: BR-BAXTER-2024BAX015047

PATIENT
  Age: 50 Year
  Sex: Female
  Weight: 70 kg

DRUGS (1)
  1. GLYCINE [Suspect]
     Active Substance: GLYCINE
     Indication: Irrigation therapy
     Dosage: 12 L, INTERVAL: 2HOURS 30 MINUTES, GLYCINE 1.5% 3000 ML
     Route: 042

REACTIONS (6)
  - Excessive ocular convergence [Recovered/Resolved]
  - Feeling abnormal [Recovered/Resolved]
  - Breath sounds abnormal [Recovered/Resolved]
  - Blood pressure abnormal [Recovered/Resolved]
  - Seizure [Recovered/Resolved]
  - Vomiting [Recovered/Resolved]

NARRATIVE: CASE EVENT DATE: 20240311
